FAERS Safety Report 20793349 (Version 1)
Quarter: 2022Q2

REPORT INFORMATION
  Report Type: Spontaneous
  Country: US (occurrence: US)
  Receive Date: 20220506
  Receipt Date: 20220506
  Transmission Date: 20220720
  Serious: Yes (Other)
  Sender: FDA-Public Use
  Company Number: US-BRISTOL-MYERS SQUIBB COMPANY-2022-031640

PATIENT
  Age: 74 Year
  Sex: Male

DRUGS (9)
  1. REVLIMID [Suspect]
     Active Substance: LENALIDOMIDE
     Indication: Plasma cell myeloma
     Route: 048
     Dates: start: 20200826
  2. MUCINEX DM [Concomitant]
     Active Substance: DEXTROMETHORPHAN HYDROBROMIDE\GUAIFENESIN
  3. FLUTICASONE [Concomitant]
     Active Substance: FLUTICASONE
     Dosage: 120
     Route: 045
  4. ALEVE [Concomitant]
     Active Substance: NAPROXEN SODIUM
  5. ASPIRIN [Concomitant]
     Active Substance: ASPIRIN
  6. DEXAMETHASONE [Concomitant]
     Active Substance: DEXAMETHASONE
  7. DIPHENHYDRAMINE HYDROCHLORIDE [Concomitant]
     Active Substance: DIPHENHYDRAMINE HYDROCHLORIDE
  8. ONDANSETRON [Concomitant]
     Active Substance: ONDANSETRON
  9. TRAMADOL [Concomitant]
     Active Substance: TRAMADOL

REACTIONS (3)
  - Arthralgia [Unknown]
  - Nasopharyngitis [Recovering/Resolving]
  - Influenza [Unknown]

NARRATIVE: CASE EVENT DATE: 20220228
